FAERS Safety Report 6737644-8 (Version None)
Quarter: 2010Q2

REPORT INFORMATION
  Report Type: 
  Country: None (occurrence: None)
  Receive Date: 20100521
  Receipt Date: 20100521
  Transmission Date: 20101027
  Serious: Yes (Life-Threatening)
  Sender: FDA-Public Use
  Company Number: None

PATIENT
  Age: 43 Year
  Sex: Female
  Weight: 71.2147 kg

DRUGS (1)
  1. TRAMADOL HCL [Suspect]
     Indication: LIGAMENT DISORDER
     Dosage: 50 MG 6 HOURS PO
     Route: 048
     Dates: start: 20100519, end: 20100519

REACTIONS (11)
  - ABDOMINAL PAIN UPPER [None]
  - COORDINATION ABNORMAL [None]
  - DISORIENTATION [None]
  - DRUG INTERACTION [None]
  - HANGOVER [None]
  - HEART RATE INCREASED [None]
  - HYPERHIDROSIS [None]
  - HYPOPHAGIA [None]
  - SOMNOLENCE [None]
  - TREMOR [None]
  - VOMITING [None]
